FAERS Safety Report 10450165 (Version 2)
Quarter: 2015Q1

REPORT INFORMATION
  Report Type: Spontaneous
  Country: US (occurrence: US)
  Receive Date: 20140912
  Receipt Date: 20150216
  Transmission Date: 20150720
  Serious: No
  Sender: FDA-Public Use
  Company Number: US-PFIZER INC-2014251664

PATIENT
  Age: 62 Year
  Sex: Female
  Weight: 52 kg

DRUGS (17)
  1. OXYCODONE [Concomitant]
     Active Substance: OXYCODONE
     Dosage: 30 MG, 3X/DAY
  2. LYRICA [Suspect]
     Active Substance: PREGABALIN
     Indication: RADICULITIS
     Dosage: 50 MG, 1X/DAY (2CAPS OF 25 MG QHS)
  3. D3 [Concomitant]
     Active Substance: 25-HYDROXYCHOLECALCIFEROL, 5-TRANS-
     Dosage: 2000 IU, 1X/DAY
  4. VITAMIN B12 [Concomitant]
     Active Substance: CYANOCOBALAMIN
     Dosage: 1000 MG, 1X/DAY
  5. BACLOFEN. [Concomitant]
     Active Substance: BACLOFEN
     Dosage: 20 MG, UNK (5 TP 6 PER DAY)
  6. ACETAMINOPHEN. [Concomitant]
     Active Substance: ACETAMINOPHEN
     Indication: HEADACHE
     Dosage: 500 MG, (TAKE 2 AS NEEDED)
  7. COENZYME Q10 [Concomitant]
     Active Substance: UBIDECARENONE
     Dosage: 300 MG, 1X/DAY
  8. ORPHENADRINE CITRATE. [Concomitant]
     Active Substance: ORPHENADRINE CITRATE
  9. LYRICA [Suspect]
     Active Substance: PREGABALIN
     Indication: MUSCLE SPASMS
  10. WARFARIN [Concomitant]
     Active Substance: WARFARIN
     Dosage: 7.5 MG, 1X/DAY
  11. MAGNESIUM [Concomitant]
     Active Substance: MAGNESIUM
     Dosage: 500 MG, 1X/DAY
  12. NORFLEX [Concomitant]
     Active Substance: ORPHENADRINE CITRATE
     Dosage: UNK
  13. MIRALAX [Concomitant]
     Active Substance: POLYETHYLENE GLYCOL 3350
     Dosage: UNK, AS NEEDED
  14. DIAZEPAM. [Concomitant]
     Active Substance: DIAZEPAM
     Dosage: 10 MG, 2X/DAY
  15. RITALIN [Concomitant]
     Active Substance: METHYLPHENIDATE HYDROCHLORIDE
     Dosage: 10 MG, 2X/DAY
  16. FENTANYL. [Concomitant]
     Active Substance: FENTANYL
     Dosage: 100 ?G, UNK (1 EVERY 48HRS)
  17. RESTASIS [Concomitant]
     Active Substance: CYCLOSPORINE
     Dosage: UNK, 1X/DAY (AT NIGHT)

REACTIONS (2)
  - Product use issue [Unknown]
  - Somnolence [Unknown]

NARRATIVE: CASE EVENT DATE: 201409
